FAERS Safety Report 25480037 (Version 1)
Quarter: 2025Q2

REPORT INFORMATION
  Report Type: Spontaneous
  Country: IT (occurrence: IT)
  Receive Date: 20250625
  Receipt Date: 20250625
  Transmission Date: 20250717
  Serious: Yes (Death, Other)
  Sender: BAUSCH AND LOMB
  Company Number: IT-PFIZER INC-2019266565

PATIENT
  Age: 69 Year
  Sex: Female

DRUGS (2)
  1. METRONIDAZOLE [Suspect]
     Active Substance: METRONIDAZOLE
     Indication: Septic shock
     Route: 065
  2. CEFTOLOZANE SULFATE\TAZOBACTAM SODIUM [Suspect]
     Active Substance: CEFTOLOZANE SULFATE\TAZOBACTAM SODIUM
     Indication: Septic shock
     Route: 065

REACTIONS (4)
  - Death [Fatal]
  - Staphylococcal infection [Fatal]
  - Off label use [Fatal]
  - Product use in unapproved indication [Fatal]
